FAERS Safety Report 21889662 (Version 1)
Quarter: 2023Q1

REPORT INFORMATION
  Report Type: Spontaneous
  Country: US (occurrence: None)
  Receive Date: 20230119
  Receipt Date: 20230119
  Transmission Date: 20230417
  Serious: No
  Sender: FDA-Public Use
  Company Number: None

PATIENT
  Age: 36 Year
  Sex: Male

DRUGS (1)
  1. TALTZ [Suspect]
     Active Substance: IXEKIZUMAB
     Indication: Psoriasis
     Dosage: 80MG EVERY 4 WEEKS SUB-Q
     Route: 058
     Dates: start: 20230114, end: 20230114

REACTIONS (5)
  - Injection site rash [None]
  - Device malfunction [None]
  - Device leakage [None]
  - Accidental exposure to product [None]
  - Product dose omission issue [None]

NARRATIVE: CASE EVENT DATE: 20230114
